FAERS Safety Report 5619684-5 (Version None)
Quarter: 2008Q1

REPORT INFORMATION
  Report Type: 
  Country: None (occurrence: None)
  Receive Date: 20080208
  Receipt Date: 20071102
  Transmission Date: 20080703
  Serious: No
  Sender: FDA-Public Use
  Company Number: A0687701A

PATIENT
  Age: 8 Year
  Sex: Male
  Weight: 27.3 kg

DRUGS (2)
  1. ALTABAX [Suspect]
     Route: 061
     Dates: start: 20071001, end: 20071001
  2. NO CONCURRENT MEDICATION [Concomitant]

REACTIONS (1)
  - PAIN [None]
